FAERS Safety Report 6237718-4 (Version None)
Quarter: 2009Q2

REPORT INFORMATION
  Report Type: 
  Country: None (occurrence: None)
  Receive Date: 20090617
  Receipt Date: 20090604
  Transmission Date: 20091009
  Serious: Yes (Death, Life-Threatening, Hospitalization, Other)
  Sender: FDA-Public Use
  Company Number: INT_00013_2009

PATIENT
  Age: 75 Year
  Sex: Female

DRUGS (2)
  1. CEFEPIME [Suspect]
     Indication: PNEUMONIA
     Dosage: (2 G 2X)
  2. VANCOMYCIN [Suspect]
     Indication: PNEUMONIA
     Dosage: (1 G 1X)

REACTIONS (5)
  - CARDIAC FAILURE CONGESTIVE [None]
  - CONFUSIONAL STATE [None]
  - CONVULSION [None]
  - NO THERAPEUTIC RESPONSE [None]
  - SEPSIS [None]
